FAERS Safety Report 14343118 (Version 2)
Quarter: 2018Q1

REPORT INFORMATION
  Report Type: Report from Study
  Country: US (occurrence: US)
  Receive Date: 20180102
  Receipt Date: 20180330
  Transmission Date: 20180509
  Serious: Yes (Other)
  Sender: FDA-Public Use
  Company Number: US-JNJFOC-20171236187

PATIENT
  Age: 66 Year
  Sex: Male

DRUGS (18)
  1. CAMELLIA SINENSIS [Concomitant]
     Active Substance: GREEN TEA LEAF
     Route: 048
     Dates: start: 2009
  2. MULTIVITAMINS [Concomitant]
     Active Substance: VITAMINS
     Dosage: 1 TAB, QD
     Route: 048
     Dates: start: 2007
  3. UBIQUINONE [Concomitant]
     Active Substance: UBIDECARENONE
     Route: 048
     Dates: start: 2007
  4. ALLOPURINOL. [Concomitant]
     Active Substance: ALLOPURINOL
     Indication: PROPHYLAXIS
  5. CHONDROITIN GLUCOSAMIN [Concomitant]
     Active Substance: CHONDROITIN SULFATE A\GLUCOSAMINE
     Dosage: 1 TAB, QD
     Route: 048
     Dates: start: 2007
  6. LOSARTAN AND HYDROCHLOROTHIAZIDE [Concomitant]
     Active Substance: HYDROCHLOROTHIAZIDE\LOSARTAN POTASSIUM
     Dosage: 1 TAB, QD
     Route: 048
     Dates: start: 2010
  7. IBRUTINIB [Suspect]
     Active Substance: IBRUTINIB
     Indication: CHRONIC LYMPHOCYTIC LEUKAEMIA
     Route: 048
     Dates: start: 20171207, end: 20171215
  8. COAL TAR. [Concomitant]
     Active Substance: COAL TAR
     Route: 061
  9. FENOFIBRATE. [Concomitant]
     Active Substance: FENOFIBRATE
     Route: 048
     Dates: start: 2012
  10. ECHINACEA [Concomitant]
     Active Substance: ECHINACEA, UNSPECIFIED
     Dates: start: 2014
  11. CLOTRIMAZOLE. [Concomitant]
     Active Substance: CLOTRIMAZOLE
     Route: 061
  12. OMEGA 3 [Concomitant]
     Active Substance: OMEGA-3 FATTY ACIDS
     Dosage: 1 CAP, QD
     Route: 048
     Dates: start: 2007
  13. ALLOPURINOL. [Concomitant]
     Active Substance: ALLOPURINOL
     Indication: TUMOUR LYSIS SYNDROME
  14. RESVERATROL [Concomitant]
     Active Substance: DIETARY SUPPLEMENT\RESVERATROL
     Dosage: 1 TAB QD
     Route: 048
     Dates: start: 2007
  15. SIMVASTATIN. [Concomitant]
     Active Substance: SIMVASTATIN
     Route: 048
     Dates: start: 2010
  16. METFORMIN [Concomitant]
     Active Substance: METFORMIN HYDROCHLORIDE
     Route: 048
     Dates: start: 2010
  17. PYCNOGENOL [Concomitant]
     Active Substance: DIETARY SUPPLEMENT
     Dosage: 1 TAB, QD
     Route: 048
     Dates: start: 2007
  18. TOCOPHEROL [Concomitant]
     Active Substance: TOCOPHEROL
     Dosage: 400 UNIT, QD
     Route: 048
     Dates: start: 2007

REACTIONS (1)
  - Pituitary haemorrhage [Unknown]

NARRATIVE: CASE EVENT DATE: 20171219
